FAERS Safety Report 5229316-6 (Version None)
Quarter: 2007Q1

REPORT INFORMATION
  Report Type: 
  Country: None (occurrence: None)
  Receive Date: 20070131
  Receipt Date: 20070122
  Transmission Date: 20070707
  Serious: Yes (Hospitalization, Other)
  Sender: FDA-Public Use
  Company Number: 163-21880-07011196

PATIENT
  Age: 68 Year
  Sex: Male

DRUGS (12)
  1. REVLIMID [Suspect]
     Indication: MULTIPLE MYELOMA
     Dosage: 25 MG, DAILY, ORAL
     Route: 048
     Dates: start: 20050201, end: 20061225
  2. ZOCOR [Concomitant]
  3. DIOVAN [Concomitant]
  4. PEPCID [Concomitant]
  5. LEVEMIR (INSULIN DETEMIR) [Concomitant]
  6. HUMULOG (INSULIN LISPRO) [Concomitant]
  7. MEFORMIN (METFORMIN) [Concomitant]
  8. ASPIRIN [Concomitant]
  9. CALCIUM (CALCIUM) [Concomitant]
  10. ASCORBIC ACID [Concomitant]
  11. QUININE SULFATE [Concomitant]
  12. COREG [Concomitant]

REACTIONS (3)
  - CARDIOMYOPATHY [None]
  - CORONARY ARTERY OCCLUSION [None]
  - GRAND MAL CONVULSION [None]
